FAERS Safety Report 7923694-2 (Version None)
Quarter: 2011Q4

REPORT INFORMATION
  Report Type: 
  Country: None (occurrence: None)
  Receive Date: 20111117
  Receipt Date: 20110207
  Transmission Date: 20120403
  Serious: No
  Sender: FDA-Public Use
  Company Number: US-AMGEN-USASP2011007093

PATIENT
  Sex: Male
  Weight: 74.83 kg

DRUGS (1)
  1. ENBREL [Suspect]
     Indication: PRODUCT USED FOR UNKNOWN INDICATION
     Dosage: UNK
     Dates: end: 20101101

REACTIONS (3)
  - FATIGUE [None]
  - LISTLESS [None]
  - PRURITUS GENERALISED [None]
